FAERS Safety Report 8142346-X (Version None)
Quarter: 2012Q1

REPORT INFORMATION
  Report Type: 
  Country: None (occurrence: None)
  Receive Date: 20120216
  Receipt Date: 20120205
  Transmission Date: 20120608
  Serious: Yes (Other)
  Sender: FDA-Public Use
  Company Number: PHHY2012PH012470

PATIENT

DRUGS (7)
  1. SULFAMETHOXAZOLE + TRIMETHOPRIM [Concomitant]
     Indication: ANTIBIOTIC PROPHYLAXIS
     Dosage: 800 MG 3 X A WEEK FOR 4 MONTHS
  2. METHYLPREDNISOLONE [Concomitant]
     Dosage: UNK UKN, UNK
  3. VALACICLOVIR [Concomitant]
     Indication: ANTIBIOTIC PROPHYLAXIS
     Dosage: 500 MG 3 X A DAY FOR 3 MONTHS
  4. MYCOSTATIN [Concomitant]
     Indication: ANTIBIOTIC PROPHYLAXIS
     Dosage: 5 ML GARGLE AND SWALLOW 3 X A DAY FOR 1 MONTH
  5. PREDNISONE TAB [Concomitant]
     Indication: RENAL TRANSPLANT
     Dosage: UNK UKN, UNK
  6. NEORAL [Suspect]
     Indication: RENAL TRANSPLANT
     Dosage: 7 MG/KG PER DAY, IN TWO DIVIDED DOSES
  7. MYCOPHENOLATE MOFETIL [Concomitant]
     Indication: RENAL TRANSPLANT
     Dosage: 1 G, UNK

REACTIONS (6)
  - COMPLICATIONS OF TRANSPLANTED KIDNEY [None]
  - NEPHROPATHY TOXIC [None]
  - CHRONIC ALLOGRAFT NEPHROPATHY [None]
  - TOXICITY TO VARIOUS AGENTS [None]
  - CYTOMEGALOVIRUS INFECTION [None]
  - KIDNEY TRANSPLANT REJECTION [None]
